FAERS Safety Report 23028138 (Version 1)
Quarter: 2023Q4

REPORT INFORMATION
  Report Type: Spontaneous
  Country: US (occurrence: US)
  Receive Date: 20231004
  Receipt Date: 20231004
  Transmission Date: 20240110
  Serious: Yes (Hospitalization, Other)
  Sender: FDA-Public Use
  Company Number: US-LUPIN HEALTHCARE (UK) LIMITED-2023-08240

PATIENT

DRUGS (2)
  1. DIVALPROEX SODIUM [Suspect]
     Active Substance: DIVALPROEX SODIUM
     Indication: Product used for unknown indication
     Dosage: UNK, ADMINISTERED 30-40 TABLETS, WITH EACH TABLET CONTAINING 500MG.
     Route: 048
  2. HALOPERIDOL [Suspect]
     Active Substance: HALOPERIDOL
     Indication: Product used for unknown indication
     Dosage: UNK, ADMINISTERED 30-40 TABLETS, WITH EACH TABLET CONTAINING 5MG.
     Route: 048

REACTIONS (5)
  - Hyperammonaemia [Recovering/Resolving]
  - Suicide attempt [Recovering/Resolving]
  - Intentional overdose [Unknown]
  - Somnolence [Recovering/Resolving]
  - Drug level increased [Recovering/Resolving]
